FAERS Safety Report 5067008-7 (Version None)
Quarter: 2006Q3

REPORT INFORMATION
  Report Type: 
  Country: None (occurrence: None)
  Receive Date: 20060801
  Receipt Date: 20060726
  Transmission Date: 20061208
  Serious: Yes (Hospitalization, Congenital Anomaly)
  Sender: FDA-Public Use
  Company Number: FR-SANOFI-SYNTHELABO-A02200601910

PATIENT

DRUGS (3)
  1. PLAQUENIL [Suspect]
     Indication: SYSTEMIC LUPUS ERYTHEMATOSUS
     Route: 064
  2. CELLCEPT [Suspect]
     Dosage: 2 G
     Route: 064
  3. PREDNISONE [Suspect]
     Indication: SYSTEMIC LUPUS ERYTHEMATOSUS
     Dosage: 10 MG
     Route: 064

REACTIONS (9)
  - ABORTION INDUCED [None]
  - CONGENITAL CARDIOVASCULAR ANOMALY [None]
  - DRUG EXPOSURE DURING PREGNANCY [None]
  - DYSMORPHISM [None]
  - LIMB HYPOPLASIA CONGENITAL [None]
  - MULTIPLE CONGENITAL ABNORMALITIES [None]
  - PULMONARY HYPOPLASIA [None]
  - RENAL HYPOPLASIA [None]
  - SPINE MALFORMATION [None]
